FAERS Safety Report 6573366-4 (Version None)
Quarter: 2010Q1

REPORT INFORMATION
  Report Type: 
  Country: None (occurrence: None)
  Receive Date: 20100204
  Receipt Date: 20100204
  Transmission Date: 20100710
  Serious: Yes (Other)
  Sender: FDA-Public Use
  Company Number: None

PATIENT
  Age: 66 Year
  Sex: Male
  Weight: 85.7298 kg

DRUGS (1)
  1. ZOLPIDEM TARTRATE [Suspect]
     Indication: INSOMNIA
     Dosage: 10 MG 1 ORAL
     Route: 048
     Dates: start: 20100121

REACTIONS (3)
  - ABNORMAL DREAMS [None]
  - SOMNAMBULISM [None]
  - VISUAL IMPAIRMENT [None]
